FAERS Safety Report 4642358-4 (Version None)
Quarter: 2005Q2

REPORT INFORMATION
  Report Type: 
  Country: None (occurrence: None)
  Receive Date: 20050420
  Receipt Date: 20050414
  Transmission Date: 20051028
  Serious: Yes (Other)
  Sender: FDA-Public Use
  Company Number: 2005057629

PATIENT
  Sex: Male

DRUGS (3)
  1. TAHOR (ATORVASTATIN) [Suspect]
     Indication: MYOCARDIAL INFARCTION
     Dosage: 80 MG
     Dates: start: 20050101, end: 20050101
  2. CLOPIDOGREL BISULFATE [Concomitant]
  3. ASPIRIN [Concomitant]

REACTIONS (2)
  - MYALGIA [None]
  - TENDON RUPTURE [None]
